FAERS Safety Report 15330026 (Version 1)
Quarter: 2018Q4

REPORT INFORMATION
  Report Type: Spontaneous
  Country: BR (occurrence: BR)
  Receive Date: 20180829
  Receipt Date: 20180829
  Transmission Date: 20190204
  Serious: Yes (Other)
  Sender: FDA-Public Use
  Company Number: PHHY2014BR119154

PATIENT
  Sex: Female
  Weight: 69 kg

DRUGS (5)
  1. LUDIOMIL [Suspect]
     Active Substance: MAPROTILINE HYDROCHLORIDE
     Dosage: 2 DF, QD
     Route: 048
     Dates: start: 199910
  2. LUDIOMIL [Suspect]
     Active Substance: MAPROTILINE HYDROCHLORIDE
     Indication: DEPRESSION
     Dosage: 25 MG, UNK
     Route: 048
  3. ALPRAZOLAM. [Suspect]
     Active Substance: ALPRAZOLAM
     Indication: PRODUCT USED FOR UNKNOWN INDICATION
     Route: 065
  4. OLCADIL [Suspect]
     Active Substance: CLOXAZOLAM
     Indication: NERVOUS SYSTEM DISORDER
     Dosage: 2 DF, QD
     Route: 048
  5. LUDIOMIL [Suspect]
     Active Substance: MAPROTILINE HYDROCHLORIDE
     Dosage: 2 DF, QD
     Route: 048

REACTIONS (17)
  - Depression [Recovering/Resolving]
  - Nervousness [Unknown]
  - Kyphosis [Recovering/Resolving]
  - Dyspnoea [Unknown]
  - Confusional state [Unknown]
  - Tremor [Recovering/Resolving]
  - Osteopenia [Recovering/Resolving]
  - Spinal pain [Recovering/Resolving]
  - Pain in extremity [Recovering/Resolving]
  - Osteoporosis [Recovering/Resolving]
  - Road traffic accident [Unknown]
  - Spinal fracture [Recovering/Resolving]
  - Spinal deformity [Recovering/Resolving]
  - Impatience [Unknown]
  - Fear [Unknown]
  - Irritability [Unknown]
  - Insomnia [Recovering/Resolving]

NARRATIVE: CASE EVENT DATE: 2011
